FAERS Safety Report 7133945-2 (Version None)
Quarter: 2010Q4

REPORT INFORMATION
  Report Type: 
  Country: None (occurrence: None)
  Receive Date: 20101203
  Receipt Date: 20100903
  Transmission Date: 20110411
  Serious: Yes (Hospitalization, Other)
  Sender: FDA-Public Use
  Company Number: US-BAYER-201011735NA

PATIENT

DRUGS (15)
  1. YAZ [Suspect]
     Indication: ORAL CONTRACEPTION
     Route: 048
     Dates: start: 20060101, end: 20090101
  2. YASMIN [Suspect]
     Indication: ORAL CONTRACEPTION
     Route: 048
     Dates: start: 20030101, end: 20090101
  3. OCELLA [Suspect]
     Indication: ORAL CONTRACEPTION
     Route: 048
     Dates: start: 20080101, end: 20090101
  4. MELOXICAM [Concomitant]
  5. NAPROXEN [Concomitant]
  6. AMOXICILLIN [Concomitant]
  7. CEFADROXIL [Concomitant]
  8. AZITHROMYCIN [Concomitant]
  9. DOXYCYCLINE [Concomitant]
  10. CLINDAMYCIN [Concomitant]
  11. UNCODEABLE ^UNCLASSIFIABLE^ [Concomitant]
  12. MUPIROCIN [Concomitant]
  13. NEOMYCIN [Concomitant]
  14. ADVIL [Concomitant]
  15. MOTRIN [Concomitant]

REACTIONS (5)
  - CHOLECYSTITIS CHRONIC [None]
  - CHOLELITHIASIS [None]
  - GALLBLADDER DISORDER [None]
  - GASTROENTERITIS [None]
  - HYPERPLASTIC CHOLECYSTOPATHY [None]
